FAERS Safety Report 22626283 (Version 1)
Quarter: 2023Q2

REPORT INFORMATION
  Report Type: Spontaneous
  Country: US (occurrence: None)
  Receive Date: 20230619
  Receipt Date: 20230619
  Transmission Date: 20230722
  Serious: No
  Sender: FDA-Public Use
  Company Number: None

PATIENT
  Age: 59 Year
  Sex: Male
  Weight: 100.7 kg

DRUGS (1)
  1. COSENTYX [Suspect]
     Active Substance: SECUKINUMAB
     Indication: Psoriatic arthropathy
     Dosage: OTHER QUANTITY : 300MG (2 SYRINGES);?FREQUENCY : AS DIRECTED;?
     Route: 058
     Dates: start: 202005

REACTIONS (4)
  - Pancreatitis [None]
  - Sepsis [None]
  - Pleural effusion [None]
  - Therapy interrupted [None]
